FAERS Safety Report 14247033 (Version 2)
Quarter: 2018Q1

REPORT INFORMATION
  Report Type: Report from Study
  Country: US (occurrence: US)
  Receive Date: 20171204
  Receipt Date: 20180112
  Transmission Date: 20180508
  Serious: Yes (Hospitalization)
  Sender: FDA-Public Use
  Company Number: US-BAYER-2017-210853

PATIENT
  Age: 45 Year
  Sex: Male
  Weight: 109.75 kg

DRUGS (11)
  1. ONDANSETRON [Concomitant]
     Active Substance: ONDANSETRON
  2. NEXAVAR [Suspect]
     Active Substance: SORAFENIB
     Indication: HEPATOCELLULAR CARCINOMA
     Dosage: 200 MG, QD FOR 3 DAYS, THEN 200 MG, BID FOR 7 DAYS, THEN TAKE 400 MG, BID
     Route: 048
     Dates: start: 20171014, end: 2017
  3. MAGNESIUM [Concomitant]
     Active Substance: MAGNESIUM
  4. MULTIVITAMIN [Concomitant]
     Active Substance: VITAMINS
  5. NEXAVAR [Suspect]
     Active Substance: SORAFENIB
     Indication: HEPATOCELLULAR CARCINOMA
     Dosage: 200 MG, QD
     Route: 048
     Dates: start: 201711, end: 201711
  6. EVEROLIMUS. [Concomitant]
     Active Substance: EVEROLIMUS
  7. GABAPENTIN. [Concomitant]
     Active Substance: GABAPENTIN
  8. NEXAVAR [Suspect]
     Active Substance: SORAFENIB
     Indication: HEPATOCELLULAR CARCINOMA
     Dosage: DAILY DOSE 400 MG
     Route: 048
     Dates: start: 20171116
  9. TACROLIMUS. [Concomitant]
     Active Substance: TACROLIMUS
  10. OXYCODONE [Concomitant]
     Active Substance: OXYCODONE
  11. ACYCLOVIR [ACICLOVIR] [Concomitant]
     Active Substance: ACYCLOVIR

REACTIONS (4)
  - Hepatic enzyme increased [Unknown]
  - Disorientation [Unknown]
  - Pyrexia [Unknown]
  - Dizziness [Unknown]

NARRATIVE: CASE EVENT DATE: 201710
